FAERS Safety Report 24003519 (Version 1)
Quarter: 2024Q2

REPORT INFORMATION
  Report Type: Spontaneous
  Country: NL (occurrence: NL)
  Receive Date: 20240624
  Receipt Date: 20240624
  Transmission Date: 20240716
  Serious: Yes (Hospitalization, Other)
  Sender: FDA-Public Use
  Company Number: NL-STRIDES ARCOLAB LIMITED-2024SP007265

PATIENT
  Sex: Male
  Weight: 65.9 kg

DRUGS (21)
  1. POLYETHYLENE GLYCOL 3350 [Suspect]
     Active Substance: POLYETHYLENE GLYCOL 3350
     Indication: Constipation
     Dosage: UNK, (8 SACHETS)
     Route: 065
  2. POLYETHYLENE GLYCOL 3350 [Suspect]
     Active Substance: POLYETHYLENE GLYCOL 3350
     Indication: Constipation prophylaxis
     Dosage: UNK
     Route: 065
  3. MEMANTINE HYDROCHLORIDE [Suspect]
     Active Substance: MEMANTINE HYDROCHLORIDE
     Indication: Schizoaffective disorder
     Dosage: 20 MILLIGRAM
     Route: 065
  4. LACTULOSE [Suspect]
     Active Substance: LACTULOSE
     Indication: Constipation prophylaxis
     Dosage: 30 MILLILITER
     Route: 065
  5. LACTULOSE [Suspect]
     Active Substance: LACTULOSE
     Dosage: UNK
     Route: 065
  6. BISACODYL [Suspect]
     Active Substance: BISACODYL
     Indication: Constipation prophylaxis
     Dosage: UNK
     Route: 065
  7. CLOZAPINE [Concomitant]
     Active Substance: CLOZAPINE
     Indication: Schizoaffective disorder
     Dosage: UNK, (RESUMED)
     Route: 065
     Dates: start: 2019
  8. CLOZAPINE [Concomitant]
     Active Substance: CLOZAPINE
     Dosage: UNK, (DOSE REDUCED)
     Route: 065
  9. CLOZAPINE [Concomitant]
     Active Substance: CLOZAPINE
     Dosage: UNK, (DOSE INCREASED)
     Route: 065
  10. CLOZAPINE [Concomitant]
     Active Substance: CLOZAPINE
     Dosage: UNK, (RESUMED)
     Route: 065
  11. HALOPERIDOL [Concomitant]
     Active Substance: HALOPERIDOL
     Indication: Schizoaffective disorder
     Dosage: UNK
     Route: 048
  12. HALOPERIDOL [Concomitant]
     Active Substance: HALOPERIDOL
     Dosage: UNK
     Route: 042
  13. VALPROIC ACID [Concomitant]
     Active Substance: VALPROIC ACID
     Indication: Schizoaffective disorder
     Dosage: 2 GRAM, OD
     Route: 065
     Dates: start: 202109
  14. GLYCOPYRRONIUM [Concomitant]
     Active Substance: GLYCOPYRRONIUM
     Indication: Salivary hypersecretion
     Dosage: 2 MILLIGRAM, AT BED TIME
     Route: 065
  15. LORAZEPAM [Concomitant]
     Active Substance: LORAZEPAM
     Indication: Schizoaffective disorder
     Dosage: UNK, PRN
     Route: 065
  16. DROPERIDOL [Concomitant]
     Active Substance: DROPERIDOL
     Indication: Schizoaffective disorder
     Dosage: UNK, PRN
     Route: 065
  17. FLUVOXAMINE [Concomitant]
     Active Substance: FLUVOXAMINE
     Indication: Schizoaffective disorder
     Dosage: 25 MILLIGRAM
     Route: 065
  18. FLUVOXAMINE [Concomitant]
     Active Substance: FLUVOXAMINE
     Dosage: 50 MILLIGRAM
     Route: 065
  19. CARBAMAZEPINE [Concomitant]
     Active Substance: CARBAMAZEPINE
     Indication: Schizoaffective disorder
     Dosage: 200 MILLIGRAM, BID
     Route: 065
  20. CARBAMAZEPINE [Concomitant]
     Active Substance: CARBAMAZEPINE
     Dosage: UNK, (DOSE INCREASED)
     Route: 065
  21. METOCLOPRAMIDE [Concomitant]
     Active Substance: METOCLOPRAMIDE
     Indication: Nausea
     Dosage: UNK
     Route: 065

REACTIONS (3)
  - Drug ineffective [Unknown]
  - Therapy non-responder [Unknown]
  - Off label use [Unknown]
